FAERS Safety Report 16721883 (Version 1)
Quarter: 2019Q3

REPORT INFORMATION
  Report Type: Report from Study
  Country: TW (occurrence: TW)
  Receive Date: 20190820
  Receipt Date: 20190820
  Transmission Date: 20191005
  Serious: Yes (Other)
  Sender: FDA-Public Use
  Company Number: PHHY2019TW192055

PATIENT
  Age: 83 Year
  Sex: Male

DRUGS (33)
  1. FUROSEMIDE. [Concomitant]
     Active Substance: FUROSEMIDE
     Indication: HYPERTENSION
     Dosage: 20 MG, UNK
     Route: 048
     Dates: start: 20160827
  2. WANSE [Concomitant]
     Indication: SINUS NODE DYSFUNCTION
     Dosage: 100 MG, UNK (}3 MONTHS BEFORE VISIT 1)
     Route: 048
  3. MYCOMB [Concomitant]
     Indication: INFECTION PROPHYLAXIS
     Dosage: 10 G, UNK
     Route: 061
     Dates: start: 20160511, end: 20160518
  4. ROWAPRAXIN [Concomitant]
     Indication: SINUS NODE DYSFUNCTION
     Dosage: 10 MG, UNK (}3 MONTHS BEFORE VISIT 1)
     Route: 048
  5. JANUMET [Concomitant]
     Active Substance: METFORMIN HYDROCHLORIDE\SITAGLIPTIN PHOSPHATE
     Indication: DIABETES MELLITUS
     Dosage: 500 MG, UNK
     Route: 048
     Dates: start: 20160624, end: 20170215
  6. RINDERON [Concomitant]
     Indication: TRANSFUSION
     Dosage: 4 MG/CAP, UNK
     Route: 042
     Dates: start: 20160323, end: 20160323
  7. SENNA [Concomitant]
     Active Substance: SENNA LEAF\SENNOSIDES\SENNOSIDES A AND B
     Indication: CONSTIPATION
     Dosage: 2 DF, UNK
     Route: 048
     Dates: start: 20160621, end: 20160623
  8. LASIX [Concomitant]
     Active Substance: FUROSEMIDE
     Indication: HYPERTENSION
     Dosage: 0.5 MG, UNK (}3 MONTHS BEFORE VISIT 1)
     Route: 048
  9. RASITOL [Concomitant]
     Indication: PROPHYLAXIS
     Dosage: 20 MG/2 ML
     Route: 042
     Dates: start: 20160316, end: 20160316
  10. URIEF [Concomitant]
     Active Substance: SILODOSIN
     Indication: BENIGN PROSTATIC HYPERPLASIA
     Dosage: 4 MG/CAP, UNK (}3 MONTHS BEFORE VISIT 1)
     Route: 048
  11. TASIGNA [Suspect]
     Active Substance: NILOTINIB
     Dosage: 150 MG, UNK
     Route: 048
     Dates: start: 20160727, end: 20160810
  12. TASIGNA [Suspect]
     Active Substance: NILOTINIB
     Dosage: 150 MG, UNK
     Route: 048
     Dates: start: 20170301
  13. ACETYLSALICYLIC ACID [Concomitant]
     Active Substance: ASPIRIN
     Indication: MYOCARDIAL ISCHAEMIA
     Dosage: 100 MG, UNK
     Route: 048
     Dates: start: 20160827
  14. TRAJENTA [Concomitant]
     Active Substance: LINAGLIPTIN
     Indication: DIABETES MELLITUS
     Dosage: 1 DF, UNK
     Route: 048
     Dates: start: 20170215
  15. TASIGNA [Suspect]
     Active Substance: NILOTINIB
     Dosage: 150 MG, UNK
     Route: 048
     Dates: start: 20160824, end: 20170228
  16. DIPHENHYDRAMINE HCL [Concomitant]
     Active Substance: DIPHENHYDRAMINE HYDROCHLORIDE
     Indication: TRANSFUSION
     Dosage: 30 MG, UNK
     Route: 042
     Dates: start: 20160323, end: 20160323
  17. GLICLAZIDE [Concomitant]
     Active Substance: GLICLAZIDE
     Indication: DIABETES MELLITUS
     Dosage: 1 DF, UNK
     Route: 048
     Dates: start: 20180127
  18. MAGNESIUM OXIDE. [Concomitant]
     Active Substance: MAGNESIUM OXIDE
     Indication: CONSTIPATION
     Dosage: 250 MG, UNK (}3 MONTHS BEFORE VISIT 1)
     Route: 048
  19. RASITOL [Concomitant]
     Indication: TRANSFUSION
     Dosage: 20 MG/2 ML
     Route: 042
     Dates: start: 20160323, end: 20160323
  20. SALINE [Concomitant]
     Active Substance: SODIUM CHLORIDE
     Dosage: 250 ML/BOT, UNK
     Route: 042
     Dates: start: 20160323, end: 20160323
  21. TASIGNA [Suspect]
     Active Substance: NILOTINIB
     Indication: CHRONIC MYELOID LEUKAEMIA
     Dosage: 600 MG, UNK
     Route: 048
     Dates: start: 20160302, end: 20160322
  22. BOKEY EMC [Concomitant]
     Indication: HYPERTENSION
     Dosage: 100 MG, UNK (}3 MONTHS BEFORE VISIT 1)
     Route: 048
  23. DIPHENHYDRAMINE HCL [Concomitant]
     Active Substance: DIPHENHYDRAMINE HYDROCHLORIDE
     Indication: SINUS NODE DYSFUNCTION
     Dosage: 30 MG, UNK
     Route: 042
     Dates: start: 20160316, end: 20160316
  24. METFORMIN [Concomitant]
     Active Substance: METFORMIN HYDROCHLORIDE
     Indication: DIABETES MELLITUS
     Dosage: 500 MG, UNK
     Route: 048
     Dates: start: 20160827, end: 20170215
  25. PANADOL [Concomitant]
     Active Substance: ACETAMINOPHEN
     Indication: HERNIA
     Dosage: 500 MG, UNK (}3 MONTHS BEFORE VISIT 1)
     Route: 048
  26. RINDERON [Concomitant]
     Indication: PROPHYLAXIS
     Dosage: 4 MG/ML, UNK
     Route: 042
     Dates: start: 20160316, end: 20160316
  27. SENNOSIDE A+B [Concomitant]
     Active Substance: SENNOSIDES A AND B
     Indication: CONSTIPATION
     Dosage: 2 DF, UNK
     Route: 048
     Dates: start: 20170513
  28. VYTORIN [Concomitant]
     Active Substance: EZETIMIBE\SIMVASTATIN
     Indication: HYPERCHOLESTEROLAEMIA
     Dosage: 1 DF (10/ 20 MG), UNK
     Route: 048
     Dates: start: 20161119
  29. TASIGNA [Suspect]
     Active Substance: NILOTINIB
     Dosage: 150 MG, UNK
     Route: 048
     Dates: start: 20160504, end: 20160531
  30. JANUMET [Concomitant]
     Active Substance: METFORMIN HYDROCHLORIDE\SITAGLIPTIN PHOSPHATE
     Dosage: 50/500 MG (FC), UNK
     Route: 048
  31. MAGNESIUM OXIDE. [Concomitant]
     Active Substance: MAGNESIUM OXIDE
     Indication: CHRONIC GASTRITIS
     Dosage: 250 MG, UNK
     Route: 048
     Dates: start: 20160827, end: 20170215
  32. AMARYL M [Concomitant]
     Active Substance: GLIMEPIRIDE\METFORMIN
     Indication: DIABETES MELLITUS
     Dosage: (}3 MONTHS BEFORE VISIT 1)
     Route: 048
  33. SALINE [Concomitant]
     Active Substance: SODIUM CHLORIDE
     Indication: MYOCARDIAL ISCHAEMIA
     Dosage: 250 ML/BOT, UNK
     Route: 042
     Dates: start: 20160316, end: 20160316

REACTIONS (1)
  - Thrombocytopenia [Recovering/Resolving]

NARRATIVE: CASE EVENT DATE: 20160323
